FAERS Safety Report 18851502 (Version 1)
Quarter: 2021Q1

REPORT INFORMATION
  Report Type: Spontaneous
  Country: US (occurrence: US)
  Receive Date: 20210205
  Receipt Date: 20210205
  Transmission Date: 20210420
  Serious: No
  Sender: FDA-Public Use
  Company Number: US-GLAXOSMITHKLINE-USCH2021003450

PATIENT
  Age: 78 Year
  Sex: Male

DRUGS (3)
  1. VOLTAREN ARTHRITIS PAIN [Suspect]
     Active Substance: DICLOFENAC SODIUM
     Indication: ARTHRITIS
     Dosage: UNK
  2. VOLTAREN ARTHRITIS PAIN [Suspect]
     Active Substance: DICLOFENAC SODIUM
     Indication: OSTEOARTHRITIS
  3. VOLTAREN ARTHRITIS PAIN [Suspect]
     Active Substance: DICLOFENAC SODIUM
     Indication: TENDONITIS

REACTIONS (3)
  - Sensitive skin [Unknown]
  - Therapeutic response unexpected [Unknown]
  - Off label use [Unknown]
